FAERS Safety Report 4961656-8 (Version None)
Quarter: 2006Q1

REPORT INFORMATION
  Report Type: 
  Country: None (occurrence: None)
  Receive Date: 20060329
  Receipt Date: 20060317
  Transmission Date: 20060701
  Serious: Yes (Hospitalization)
  Sender: FDA-Public Use
  Company Number: 2006US000515

PATIENT
  Age: 60 Year
  Sex: Male

DRUGS (17)
  1. PROGRAF [Suspect]
     Indication: PROPHYLAXIS AGAINST TRANSPLANT REJECTION
     Dosage: 10 MG, UID/QD, ORAL
     Route: 048
     Dates: start: 20050509
  2. MYCOPHENOLATE MOFETIL [Suspect]
     Indication: PROPHYLAXIS AGAINST TRANSPLANT REJECTION
     Dosage: 1 G, BID, ORAL
     Route: 048
     Dates: start: 20050509
  3. PREDNISONE TAB [Suspect]
     Indication: PROPHYLAXIS AGAINST TRANSPLANT REJECTION
     Dosage: 20 MG, UID/QD, ORAL
     Route: 048
     Dates: start: 20050509
  4. PROTONIX [Concomitant]
  5. NORVASC [Concomitant]
  6. TOPROL-XL [Concomitant]
  7. FLAGYL [Concomitant]
  8. NYSTATIN [Concomitant]
  9. SODIUM BICARBONATE [Concomitant]
  10. DIGOXIN [Concomitant]
  11. LANTUS [Concomitant]
  12. CALCIUM GLUCONATE [Concomitant]
  13. AMBIEN [Concomitant]
  14. HYDRALAZINE [Concomitant]
  15. CARDIAZEM (DILTIAZEM) [Concomitant]
  16. EPOGEN [Concomitant]
  17. LISINOPRIL [Concomitant]

REACTIONS (4)
  - ATRIAL FIBRILLATION [None]
  - GRAFT DYSFUNCTION [None]
  - PYELONEPHRITIS [None]
  - SEPSIS [None]
